FAERS Safety Report 8616338-8 (Version None)
Quarter: 2012Q3

REPORT INFORMATION
  Report Type: 
  Country: None (occurrence: None)
  Receive Date: 20120823
  Receipt Date: 20120814
  Transmission Date: 20120928
  Serious: Yes (Hospitalization)
  Sender: FDA-Public Use
  Company Number: CA-BAXTER-2012BAX014425

PATIENT
  Age: 14 Year
  Sex: Male
  Weight: 62 kg

DRUGS (23)
  1. GAMMAGARD LIQUID [Suspect]
     Indication: DERMATOMYOSITIS
     Dosage: 4/4 600ML
     Route: 042
     Dates: start: 20120508, end: 20120508
  2. CLOXACILLIN SODIUM [Concomitant]
     Route: 042
     Dates: start: 20120510
  3. CLOXACILLIN SODIUM [Concomitant]
     Route: 042
     Dates: start: 20120510
  4. PRO-HYDROXYQUINE [Concomitant]
     Route: 048
     Dates: start: 20120508
  5. AZATHIOPRINE SODIUM [Concomitant]
     Dosage: 1 1/2
     Route: 048
     Dates: start: 20120509
  6. CEFTRIAXONE [Concomitant]
     Route: 042
     Dates: start: 20120510
  7. AZATHIOPRINE SODIUM [Concomitant]
     Dosage: 1 1/2
     Route: 048
     Dates: start: 20120508
  8. NAPROSYN [Concomitant]
     Route: 048
     Dates: start: 20120510
  9. NAPROSYN [Concomitant]
     Route: 048
     Dates: start: 20120510
  10. COLCHICINE [Concomitant]
     Route: 048
     Dates: start: 20120508
  11. COLCHICINE [Concomitant]
     Route: 048
     Dates: start: 20120509
  12. PRO-HYDROXYQUINE [Concomitant]
     Route: 048
     Dates: start: 20120509
  13. PREDNISONE TAB [Concomitant]
     Dosage: 1/2
     Route: 048
     Dates: start: 20120509
  14. PROGRAF [Concomitant]
     Route: 048
     Dates: start: 20120508
  15. PROGRAF [Concomitant]
     Route: 048
     Dates: start: 20120509
  16. EURO FOLIC [Concomitant]
     Route: 048
     Dates: start: 20120508
  17. NAPROSYN [Concomitant]
     Route: 042
     Dates: start: 20120509
  18. CEFTRIAXONE [Concomitant]
     Route: 042
     Dates: start: 20120510
  19. GAMMAGARD LIQUID [Suspect]
     Dosage: 4/4 600ML
     Route: 042
     Dates: start: 20120509, end: 20120509
  20. EURO FOLIC [Concomitant]
     Route: 048
     Dates: start: 20120509
  21. PREDNISONE TAB [Concomitant]
     Dosage: 1/2
     Route: 048
     Dates: start: 20120508
  22. SIMVASTATIN [Concomitant]
     Route: 048
     Dates: start: 20120510
  23. VANCOMYCIN [Concomitant]
     Route: 042
     Dates: start: 20120510

REACTIONS (6)
  - EXERTIONAL HEADACHE [None]
  - MENINGITIS ASEPTIC [None]
  - ARTHRALGIA [None]
  - WOUND INFECTION STAPHYLOCOCCAL [None]
  - HEADACHE [None]
  - NUCHAL RIGIDITY [None]
